FAERS Safety Report 8896902 (Version 1)
Quarter: 2012Q4

REPORT INFORMATION
  Report Type: 
  Country: US (occurrence: US)
  Receive Date: 20121109
  Receipt Date: 20121109
  Transmission Date: 20130627
  Serious: No
  Sender: FDA-Public Use
  Company Number: US-BAYER-2012-115348

PATIENT
  Age: 28 Year
  Sex: Female

DRUGS (3)
  1. MAGNEVIST [Suspect]
     Indication: MRI
     Dosage: 14 ml, ONCE
     Route: 042
     Dates: start: 20121101, end: 20121101
  2. MAGNEVIST [Suspect]
     Indication: ENDOMETRIOSIS
  3. DESOGEN [DESOGESTREL,ETHINYLESTRADIOL] [Concomitant]
     Indication: BIRTH CONTROL
     Route: 048

REACTIONS (2)
  - Rash [None]
  - Flushing [None]
